FAERS Safety Report 4406566-X (Version None)
Quarter: 2004Q3

REPORT INFORMATION
  Report Type: 
  Country: None (occurrence: None)
  Receive Date: 20040723
  Receipt Date: 20040719
  Transmission Date: 20050211
  Serious: Yes (Other)
  Sender: FDA-Public Use
  Company Number: US-GLAXOSMITHKLINE-A0518825A

PATIENT
  Age: 57 Year
  Sex: Female

DRUGS (5)
  1. RELAFEN [Suspect]
     Indication: OSTEOARTHRITIS
     Dosage: 750MG TWICE PER DAY
     Route: 048
  2. SYNTHROID [Concomitant]
  3. MAXZIDE [Concomitant]
  4. ADVIL [Concomitant]
  5. TYLENOL [Concomitant]

REACTIONS (1)
  - EYE HAEMORRHAGE [None]
